FAERS Safety Report 8061653-2 (Version None)
Quarter: 2012Q1

REPORT INFORMATION
  Report Type: 
  Country: None (occurrence: None)
  Receive Date: 20120123
  Receipt Date: 20120112
  Transmission Date: 20120608
  Serious: Yes (Other)
  Sender: FDA-Public Use
  Company Number: GB-BRISTOL-MYERS SQUIBB COMPANY-16346975

PATIENT
  Sex: Male

DRUGS (1)
  1. SUSTIVA [Suspect]
     Dosage: DURATION: SEVERAL YEARS

REACTIONS (1)
  - NEOPLASM MALIGNANT [None]
